FAERS Safety Report 7483455-8 (Version None)
Quarter: 2011Q2

REPORT INFORMATION
  Report Type: 
  Country: None (occurrence: None)
  Receive Date: 20110517
  Receipt Date: 20110506
  Transmission Date: 20111010
  Serious: Yes (Hospitalization, Other)
  Sender: FDA-Public Use
  Company Number: US-BAYER-2011-039501

PATIENT
  Sex: Female

DRUGS (1)
  1. MIRENA [Suspect]
     Indication: CONTRACEPTION
     Dosage: UNK
     Route: 015
     Dates: start: 20110502, end: 20110504

REACTIONS (4)
  - PERITONITIS [None]
  - APPENDICITIS PERFORATED [None]
  - STREPTOCOCCAL INFECTION [None]
  - PAIN [None]
